FAERS Safety Report 15735095 (Version 1)
Quarter: 2018Q4

REPORT INFORMATION
  Report Type: Spontaneous
  Country: FR (occurrence: FR)
  Receive Date: 20181218
  Receipt Date: 20181218
  Transmission Date: 20190205
  Serious: Yes (Hospitalization)
  Sender: FDA-Public Use
  Company Number: FR-BAYER-2018-229313

PATIENT
  Age: 47 Year
  Sex: Male

DRUGS (3)
  1. CIFLOX [Suspect]
     Active Substance: CIPROFLOXACIN
     Indication: MEDICAL DEVICE SITE JOINT INFECTION
     Dosage: 1500 MG, QD
     Route: 048
     Dates: start: 20180913, end: 20181024
  2. TEICOPLANINE [Suspect]
     Active Substance: TEICOPLANIN
     Indication: MEDICAL DEVICE SITE JOINT INFECTION
     Dosage: 900 MG, QD
     Route: 042
     Dates: start: 20180913, end: 20181024
  3. FLUCONAZOLE. [Suspect]
     Active Substance: FLUCONAZOLE
     Indication: MEDICAL DEVICE SITE JOINT INFECTION
     Dosage: 400 MG, QD
     Route: 048
     Dates: start: 20180913, end: 20181024

REACTIONS (1)
  - Renal tubular necrosis [Not Recovered/Not Resolved]

NARRATIVE: CASE EVENT DATE: 20181024
